FAERS Safety Report 6681633-9 (Version None)
Quarter: 2010Q2

REPORT INFORMATION
  Report Type: 
  Country: None (occurrence: None)
  Receive Date: 20100414
  Receipt Date: 20100405
  Transmission Date: 20101027
  Serious: Yes (Life-Threatening, Hospitalization, Disabling, Other)
  Sender: FDA-Public Use
  Company Number: US-ELI_LILLY_AND_COMPANY-US200911004816

PATIENT
  Sex: Male
  Weight: 106.58 kg

DRUGS (14)
  1. ZYPREXA [Suspect]
     Indication: BIPOLAR DISORDER
     Dosage: 1 D/F, UNK
     Dates: start: 19970101
  2. ZYPREXA [Suspect]
     Dosage: 30 MG, EACH EVENING
     Dates: start: 19981215, end: 20001101
  3. ZYPREXA [Suspect]
     Dosage: 20 MG, EACH EVENING
     Dates: start: 20001129, end: 20020127
  4. ZYPREXA [Suspect]
     Dosage: 25 MG, EACH EVENING
     Dates: start: 20020128, end: 20050727
  5. ZYPREXA [Suspect]
     Dosage: 20 MG, EACH EVENING
     Dates: start: 20050728, end: 20051010
  6. ZYPREXA [Suspect]
     Dosage: 15 MG, EACH EVENING
     Dates: start: 20051011, end: 20060524
  7. ZYPREXA [Suspect]
     Dosage: 10 MG, EACH EVENING
     Dates: start: 20060525, end: 20061106
  8. ZYPREXA [Suspect]
     Dosage: 7.5 MG, EACH EVENING
     Dates: start: 20061107, end: 20070416
  9. ZYPREXA [Suspect]
     Dosage: 5 MG, EACH EVENING
     Dates: start: 20070417, end: 20070818
  10. ZYPREXA ZYDIS [Suspect]
     Indication: BIPOLAR DISORDER
     Dosage: 1 D/F, UNK
     Dates: start: 20030101
  11. NICOTINE [Concomitant]
  12. ALCOHOL [Concomitant]
  13. COCAINE [Concomitant]
  14. JANUVIA [Concomitant]

REACTIONS (17)
  - ACTIVATED PARTIAL THROMBOPLASTIN TIME PROLONGED [None]
  - ALANINE AMINOTRANSFERASE INCREASED [None]
  - ASPARTATE AMINOTRANSFERASE INCREASED [None]
  - BLOOD URINE PRESENT [None]
  - CELLULITIS [None]
  - CEREBROVASCULAR ACCIDENT [None]
  - CHEST PAIN [None]
  - CHRONIC OBSTRUCTIVE PULMONARY DISEASE [None]
  - DIABETES MELLITUS [None]
  - DIASTOLIC DYSFUNCTION [None]
  - HAEMOGLOBIN DECREASED [None]
  - HEPATIC LESION [None]
  - METABOLIC DISORDER [None]
  - OVERDOSE [None]
  - PNEUMONIA [None]
  - RESPIRATORY FAILURE [None]
  - WEIGHT INCREASED [None]
